FAERS Safety Report 8343865 (Version 8)
Quarter: 2015Q3

REPORT INFORMATION
  Report Type: Spontaneous
  Country: CA (occurrence: CA)
  Receive Date: 20120119
  Receipt Date: 20150902
  Transmission Date: 20151125
  Serious: Yes (Hospitalization, Disabling, Other)
  Sender: FDA-Public Use
  Company Number: CA-009507513-1108USA02801

PATIENT
  Sex: Female
  Weight: 108.86 kg

DRUGS (10)
  1. PRILOSEC [Concomitant]
     Active Substance: OMEPRAZOLE MAGNESIUM
     Indication: PRODUCT USED FOR UNKNOWN INDICATION
     Route: 065
     Dates: start: 1994
  2. FOSAMAX [Suspect]
     Active Substance: ALENDRONATE SODIUM
     Dosage: UNK
     Route: 048
     Dates: start: 19960131, end: 20021125
  3. MAGNESIUM (UNSPECIFIED) [Concomitant]
     Active Substance: MAGNESIUM
     Indication: PRODUCT USED FOR UNKNOWN INDICATION
     Dosage: 400 MG, UNK
     Route: 065
     Dates: start: 1995
  4. BONIVA [Suspect]
     Active Substance: IBANDRONATE SODIUM
     Indication: OSTEOPOROSIS
     Dosage: 150 MG, UNK
     Route: 048
     Dates: start: 200610, end: 200909
  5. MK-9278 [Concomitant]
     Active Substance: VITAMINS
     Indication: ROUTINE HEALTH MAINTENANCE
     Dosage: UNK UNK, QD
     Route: 065
     Dates: start: 1995
  6. FOSAMAX [Suspect]
     Active Substance: ALENDRONATE SODIUM
     Indication: OSTEOPOROSIS
     Dosage: 10 MG, UNK
     Route: 048
     Dates: start: 199511, end: 200101
  7. FOSAMAX [Suspect]
     Active Substance: ALENDRONATE SODIUM
     Dosage: 70 MG, UNK
     Route: 048
     Dates: start: 200101, end: 2009
  8. BORON (UNSPECIFIED) [Concomitant]
     Indication: PRODUCT USED FOR UNKNOWN INDICATION
     Dosage: 3 MG, UNK
     Route: 065
     Dates: start: 1995
  9. FORTEO [Suspect]
     Active Substance: TERIPARATIDE
     Indication: OSTEOPOROSIS
  10. PRILOSEC [Concomitant]
     Active Substance: OMEPRAZOLE MAGNESIUM
     Indication: PRODUCT USED FOR UNKNOWN INDICATION
     Route: 065
     Dates: start: 1994

REACTIONS (28)
  - Femur fracture [Unknown]
  - Vitamin D deficiency [Unknown]
  - Cholelithiasis [Unknown]
  - Emphysema [Unknown]
  - Joint effusion [Unknown]
  - Oedema peripheral [Unknown]
  - Low turnover osteopathy [Not Recovered/Not Resolved]
  - Hypothyroidism [Unknown]
  - Arthritis [Unknown]
  - Osteoarthritis [Unknown]
  - Calculus ureteric [Unknown]
  - Nephrolithiasis [Unknown]
  - Chronic obstructive pulmonary disease [Unknown]
  - Fall [Unknown]
  - Femur fracture [Recovering/Resolving]
  - Fracture delayed union [Unknown]
  - Adverse event [Unknown]
  - Hypertension [Unknown]
  - Osteopenia [Unknown]
  - Nephrolithiasis [Unknown]
  - Diabetes mellitus [Unknown]
  - Ovarian disorder [Unknown]
  - Squamous cell carcinoma of skin [Unknown]
  - Hydronephrosis [Recovered/Resolved]
  - Basal cell carcinoma [Unknown]
  - Bronchitis chronic [Unknown]
  - Asthma [Unknown]
  - Femur fracture [Recovered/Resolved with Sequelae]

NARRATIVE: CASE EVENT DATE: 199511
